FAERS Safety Report 20718462 (Version 2)
Quarter: 2022Q2

REPORT INFORMATION
  Report Type: Spontaneous
  Country: US (occurrence: US)
  Receive Date: 20220418
  Receipt Date: 20220426
  Transmission Date: 20220720
  Serious: No
  Sender: FDA-Public Use
  Company Number: US-BEH-2022144262

PATIENT
  Sex: Female

DRUGS (1)
  1. HIZENTRA [Suspect]
     Active Substance: HUMAN IMMUNOGLOBULIN G
     Indication: Humoral immune defect
     Dosage: 20 GRAM, QOW
     Route: 058
     Dates: start: 202010

REACTIONS (4)
  - Weight decreased [Unknown]
  - Circadian rhythm sleep disorder [Unknown]
  - Product dose omission in error [Unknown]
  - Injection site pain [Recovered/Resolved]
